FAERS Safety Report 8230073-X (Version None)
Quarter: 2012Q1

REPORT INFORMATION
  Report Type: 
  Country: None (occurrence: None)
  Receive Date: 20120323
  Receipt Date: 20120320
  Transmission Date: 20120608
  Serious: No
  Sender: FDA-Public Use
  Company Number: US-PFIZER INC-2012033336

PATIENT
  Sex: Female

DRUGS (5)
  1. TYLENOL [Suspect]
     Dosage: UNK
  2. BACTRIM [Suspect]
     Dosage: UNK
  3. VENLAFAXINE HCL [Suspect]
     Dosage: UNK
  4. CHLORPROPAMIDE [Suspect]
     Dosage: UNK
  5. GLYBURIDE [Suspect]
     Dosage: UNK

REACTIONS (1)
  - DRUG HYPERSENSITIVITY [None]
